FAERS Safety Report 7972746-X (Version None)
Quarter: 2011Q4

REPORT INFORMATION
  Report Type: 
  Country: None (occurrence: None)
  Receive Date: 20111213
  Receipt Date: 20111104
  Transmission Date: 20120403
  Serious: Yes (Hospitalization)
  Sender: FDA-Public Use
  Company Number: US-ROCHE-1015030

PATIENT
  Sex: Male

DRUGS (3)
  1. COPEGUS [Suspect]
     Indication: HEPATITIS C
     Route: 048
     Dates: start: 20111021
  2. TELAPREVIR [Suspect]
     Indication: HEPATITIS C
     Dates: start: 20111021
  3. PEGASYS [Suspect]
     Indication: HEPATITIS C
     Route: 058
     Dates: start: 20111021

REACTIONS (4)
  - HYPOTENSION [None]
  - DIARRHOEA [None]
  - CHEST PAIN [None]
  - BLOOD SODIUM DECREASED [None]
